FAERS Safety Report 24193012 (Version 2)
Quarter: 2024Q3

REPORT INFORMATION
  Report Type: Report from Study
  Country: US (occurrence: US)
  Receive Date: 20240809
  Receipt Date: 20240821
  Transmission Date: 20241017
  Serious: Yes (Life-Threatening, Other)
  Sender: CSL BEHRING
  Company Number: US-BEH-2024176787

PATIENT
  Age: 37 Year
  Sex: Female
  Weight: 58.503 kg

DRUGS (2)
  1. HAEGARDA [Suspect]
     Active Substance: HUMAN C1-ESTERASE INHIBITOR
     Indication: Hereditary angioedema
     Dosage: 4000 IU/KG, BIW
     Route: 058
  2. HAEGARDA [Suspect]
     Active Substance: HUMAN C1-ESTERASE INHIBITOR
     Indication: Prophylaxis
     Dosage: 3500 IU/KG, BIW
     Route: 065

REACTIONS (6)
  - Hereditary angioedema [Recovered/Resolved]
  - Hereditary angioedema [Recovered/Resolved]
  - Hereditary angioedema [Recovered/Resolved]
  - Drug ineffective [Recovered/Resolved]
  - Hereditary angioedema [Not Recovered/Not Resolved]
  - Hereditary angioedema [Not Recovered/Not Resolved]
